FAERS Safety Report 17901606 (Version 1)
Quarter: 2020Q2

REPORT INFORMATION
  Report Type: Spontaneous
  Country: ES (occurrence: ES)
  Receive Date: 20200616
  Receipt Date: 20200616
  Transmission Date: 20200714
  Serious: Yes (Other)
  Sender: FDA-Public Use
  Company Number: ES-JNJFOC-20200611614

PATIENT
  Age: 81 Year
  Sex: Male

DRUGS (8)
  1. KEPPRA [Concomitant]
     Active Substance: LEVETIRACETAM
     Dosage: 1 GRAM, EVERY 12 HRS
     Route: 042
  2. HIDROFEROL [Concomitant]
     Active Substance: CALCIFEDIOL
     Dosage: 266 MICROGRAM, 2/MONTH
     Route: 048
  3. IVABRADINE [Concomitant]
     Active Substance: IVABRADINE
     Dosage: 5 MILLIGRAM, EVERY 12 HRS
     Route: 048
  4. TRAMADOL HYDROCHLORIDE. [Suspect]
     Active Substance: TRAMADOL HYDROCHLORIDE
     Indication: TENDONITIS
     Dosage: UNK
     Route: 048
     Dates: start: 20191115, end: 20191122
  5. ATORVASTATINA [Concomitant]
     Active Substance: ATORVASTATIN
     Dosage: 80 MILLIGRAM, 1/DAY
     Route: 048
  6. HYDROCHLOROTHIAZIDE W/RAMIPRIL [Concomitant]
     Active Substance: HYDROCHLOROTHIAZIDE\RAMIPRIL
     Dosage: 1 DOSAGE FORM, 1/DAY
     Route: 048
  7. OMEPRAZOLE. [Concomitant]
     Active Substance: OMEPRAZOLE
     Dosage: 20 MILLIGRAM, 1/DAY
     Route: 048
  8. ACETYLSALICYLIC ACID [Concomitant]
     Active Substance: ASPIRIN
     Dosage: 100 MILLIGRAM, 1/DAY
     Route: 048

REACTIONS (1)
  - Faecaloma [Recovered/Resolved]

NARRATIVE: CASE EVENT DATE: 20191122
